FAERS Safety Report 25971252 (Version 1)
Quarter: 2025Q4

REPORT INFORMATION
  Report Type: Spontaneous
  Country: EU (occurrence: EU)
  Receive Date: 20251028
  Receipt Date: 20251028
  Transmission Date: 20260117
  Serious: Yes (Death, Hospitalization)
  Sender: MERCK SHARP & DOHME LLC
  Company Number: EU-009507513-2342813

PATIENT
  Age: 10 Year
  Sex: Female

DRUGS (1)
  1. LETERMOVIR [Suspect]
     Active Substance: LETERMOVIR
     Indication: Prophylaxis against transplant rejection
     Route: 048
     Dates: start: 20250801

REACTIONS (4)
  - Death [Fatal]
  - Graft versus host disease [Unknown]
  - Mucosal inflammation [Unknown]
  - Parenteral nutrition [Unknown]

NARRATIVE: CASE EVENT DATE: 20250101
